FAERS Safety Report 5205605-6 (Version None)
Quarter: 2006Q4

REPORT INFORMATION
  Report Type: 
  Country: None (occurrence: None)
  Receive Date: 20061027
  Receipt Date: 20060921
  Transmission Date: 20070319
  Serious: No
  Sender: FDA-Public Use
  Company Number: M001391

PATIENT
  Sex: 0

DRUGS (2)
  1. ACETADOTE [Suspect]
     Indication: OVERDOSE
  2. DIPHENHYDRAMINE HCL [Concomitant]

REACTIONS (1)
  - FLUSHING [None]
